FAERS Safety Report 13644820 (Version 1)
Quarter: 2017Q2

REPORT INFORMATION
  Report Type: Spontaneous
  Country: US (occurrence: US)
  Receive Date: 20170612
  Receipt Date: 20170612
  Transmission Date: 20170830
  Serious: No
  Sender: FDA-Public Use
  Company Number: US-ROCHE-1518483

PATIENT
  Age: 36 Year
  Sex: Female

DRUGS (1)
  1. XELODA [Suspect]
     Active Substance: CAPECITABINE
     Indication: CHOLANGIOCARCINOMA
     Dosage: 3 TABLETS EVERY AM AND 2 TABS IN THE PM
     Route: 048

REACTIONS (2)
  - Abdominal discomfort [Unknown]
  - Nausea [Unknown]
